FAERS Safety Report 8351887-1 (Version None)
Quarter: 2012Q2

REPORT INFORMATION
  Report Type: 
  Country: None (occurrence: None)
  Receive Date: 20120511
  Receipt Date: 20120508
  Transmission Date: 20120825
  Serious: No
  Sender: FDA-Public Use
  Company Number: US-PFIZER INC-2012087300

PATIENT
  Sex: Female
  Weight: 104.3 kg

DRUGS (7)
  1. NEXIUM [Concomitant]
  2. LYRICA [Suspect]
     Indication: RESTLESS LEGS SYNDROME
     Dosage: 75 MG, 2X/DAY
     Route: 048
  3. LYRICA [Suspect]
     Dosage: 150 MG, 2X/DAY
     Route: 048
     Dates: end: 20110101
  4. ALPRAZOLAM [Suspect]
     Indication: ANXIETY
     Dosage: 0.25 MG, 1X/DAY
     Route: 048
  5. NEURONTIN [Suspect]
     Indication: PERIPHERAL NERVE INJURY
     Dosage: UNK
     Route: 048
  6. METHADONE [Concomitant]
     Indication: PAIN
  7. LYRICA [Suspect]
     Indication: NERVE INJURY
     Dosage: 50 MG, 1X/DAY
     Route: 048

REACTIONS (1)
  - DRUG INEFFECTIVE [None]
